FAERS Safety Report 16803965 (Version 1)
Quarter: 2019Q3

REPORT INFORMATION
  Report Type: Spontaneous
  Country: US (occurrence: US)
  Receive Date: 20190913
  Receipt Date: 20190913
  Transmission Date: 20191005
  Serious: No
  Sender: FDA-Public Use
  Company Number: US-FRESENIUS KABI-FK201909930

PATIENT
  Age: 36 Year
  Sex: Female

DRUGS (1)
  1. PROGESTERONE INJECTION USP [Suspect]
     Active Substance: PROGESTERONE
     Indication: INFERTILITY
     Route: 030
     Dates: start: 20190906

REACTIONS (1)
  - Injection site pain [Unknown]

NARRATIVE: CASE EVENT DATE: 20190906
